FAERS Safety Report 22270373 (Version 1)
Quarter: 2023Q2

REPORT INFORMATION
  Report Type: Spontaneous
  Country: US (occurrence: None)
  Receive Date: 20230429
  Receipt Date: 20230429
  Transmission Date: 20230722
  Serious: No
  Sender: FDA-Public Use
  Company Number: None

PATIENT
  Age: 70 Year
  Sex: Female
  Weight: 58.5 kg

DRUGS (12)
  1. REPATHA [Suspect]
     Active Substance: EVOLOCUMAB
     Indication: Blood cholesterol increased
     Dosage: 1 INJECTION EVEY 2 WEEKS SUBCUTANEOUS?
     Route: 058
  2. ELIQUIS [Concomitant]
     Active Substance: APIXABAN
  3. SOTALOL [Concomitant]
     Active Substance: SOTALOL
  4. METOPROLOL SUCCINATE [Concomitant]
     Active Substance: METOPROLOL SUCCINATE
  5. ESZOPICLONE [Concomitant]
     Active Substance: ESZOPICLONE
  6. MELOXICAM [Concomitant]
     Active Substance: MELOXICAM
  7. MYRBETRIQ [Concomitant]
     Active Substance: MIRABEGRON
  8. SOLIFENACIN [Concomitant]
     Active Substance: SOLIFENACIN
  9. VITAMIN D3 [Concomitant]
  10. COLLAGEN [Concomitant]
     Active Substance: COLLAGEN
  11. OMEGA-3 ACIDS [Concomitant]
     Active Substance: OMEGA-3 FATTY ACIDS
  12. EPA+DHA [Concomitant]

REACTIONS (2)
  - Injection site mass [None]
  - Injection site pain [None]

NARRATIVE: CASE EVENT DATE: 20230428
